FAERS Safety Report 5418225-5 (Version None)
Quarter: 2007Q3

REPORT INFORMATION
  Report Type: 
  Country: None (occurrence: None)
  Receive Date: 20070817
  Receipt Date: 20070806
  Transmission Date: 20080115
  Serious: Yes (Congenital Anomaly)
  Sender: FDA-Public Use
  Company Number: US-ROCHE-510565

PATIENT
  Sex: Male

DRUGS (1)
  1. ACCUTANE [Suspect]
     Dates: start: 20050815, end: 20050908

REACTIONS (3)
  - CEREBELLAR HYPOPLASIA [None]
  - EAR MALFORMATION [None]
  - MULTIPLE CARDIAC DEFECTS [None]
